FAERS Safety Report 4345787-1 (Version None)
Quarter: 2004Q2

REPORT INFORMATION
  Report Type: 
  Country: None (occurrence: None)
  Receive Date: 20040421
  Receipt Date: 19970124
  Transmission Date: 20050107
  Serious: Yes (Death, Life-Threatening, Hospitalization)
  Sender: FDA-Public Use
  Company Number: EZFI 00154

PATIENT
  Age: 45 Year
  Sex: Male
  Weight: 68 kg

DRUGS (1)
  1. POVIDONE IODINE [Suspect]
     Dosage: BUCCAL
     Route: 002
     Dates: start: 19961213, end: 19970101

REACTIONS (1)
  - STEVENS-JOHNSON SYNDROME [None]
